FAERS Safety Report 10196807 (Version 2)
Quarter: 2014Q2

REPORT INFORMATION
  Report Type: Spontaneous
  Country: JP (occurrence: JP)
  Receive Date: 20140527
  Receipt Date: 20140612
  Transmission Date: 20141212
  Serious: Yes (Other)
  Sender: FDA-Public Use
  Company Number: JP-PFIZER INC-2014141248

PATIENT
  Age: 64 Year
  Sex: Female

DRUGS (2)
  1. LYRICA [Suspect]
     Indication: HYPOAESTHESIA
     Dosage: UNK
     Route: 048
     Dates: start: 201310
  2. ABRAXANE /01116001/ [Suspect]
     Indication: BREAST CANCER
     Dosage: UNK

REACTIONS (3)
  - Punctate keratitis [Recovering/Resolving]
  - Corneal opacity [Recovering/Resolving]
  - Visual acuity reduced [Unknown]
